FAERS Safety Report 8321769-X (Version None)
Quarter: 2012Q2

REPORT INFORMATION
  Report Type: 
  Country: None (occurrence: None)
  Receive Date: 20120426
  Receipt Date: 20120417
  Transmission Date: 20120825
  Serious: Yes (Hospitalization, Other)
  Sender: FDA-Public Use
  Company Number: IMP_05770_2012

PATIENT
  Age: 56 Year
  Sex: Male

DRUGS (1)
  1. CABERGOLINE [Suspect]
     Indication: PROLACTINOMA
     Dosage: (0.5 MG 2X/WEEK)

REACTIONS (11)
  - COMA SCALE ABNORMAL [None]
  - PNEUMOCEPHALUS [None]
  - INTRACRANIAL PRESSURE INCREASED [None]
  - HEADACHE [None]
  - URINARY INCONTINENCE [None]
  - BONE DISORDER [None]
  - DEPRESSED LEVEL OF CONSCIOUSNESS [None]
  - DYSSTASIA [None]
  - VOMITING [None]
  - HEMIPARESIS [None]
  - MUSCULOSKELETAL STIFFNESS [None]
